APPROVED DRUG PRODUCT: LEVONORGESTREL AND ETHINYL ESTRADIOL
Active Ingredient: ETHINYL ESTRADIOL; LEVONORGESTREL
Strength: 0.03MG;0.15MG
Dosage Form/Route: TABLET;ORAL-28
Application: A091663 | Product #001 | TE Code: AB
Applicant: XIROMED LLC
Approved: Dec 21, 2012 | RLD: No | RS: No | Type: RX